FAERS Safety Report 21349169 (Version 1)
Quarter: 2022Q3

REPORT INFORMATION
  Report Type: Spontaneous
  Country: US (occurrence: US)
  Receive Date: 20220919
  Receipt Date: 20220919
  Transmission Date: 20221027
  Serious: Yes (Other)
  Sender: FDA-Public Use
  Company Number: US-GSKCCFUS-Case-01494368_AE-85150

PATIENT

DRUGS (1)
  1. BREO ELLIPTA [Suspect]
     Active Substance: FLUTICASONE FUROATE\VILANTEROL TRIFENATATE
     Indication: Product used for unknown indication
     Dosage: 100 MCG/MG, 1D
     Route: 055
     Dates: start: 20220701, end: 20220912

REACTIONS (6)
  - Adrenal insufficiency [Unknown]
  - Blood pressure increased [Unknown]
  - Hernia repair [Unknown]
  - Hypotension [Unknown]
  - Colonoscopy [Unknown]
  - Endoscopy [Unknown]

NARRATIVE: CASE EVENT DATE: 20220831
